FAERS Safety Report 20612955 (Version 2)
Quarter: 2022Q1

REPORT INFORMATION
  Report Type: Report from Study
  Country: US (occurrence: US)
  Receive Date: 20220318
  Receipt Date: 20220326
  Transmission Date: 20220423
  Serious: Yes (Hospitalization)
  Sender: FDA-Public Use
  Company Number: US-REGENERON PHARMACEUTICALS, INC.-2022-25354

PATIENT
  Age: 56 Year
  Sex: Female

DRUGS (22)
  1. CEMIPLIMAB [Suspect]
     Active Substance: CEMIPLIMAB
     Indication: Pancreatic carcinoma metastatic
     Dosage: 350MG, DAY 1, EVERY 21 DAYS
     Route: 042
     Dates: start: 20211130, end: 20220110
  2. PLERIXAFOR [Suspect]
     Active Substance: PLERIXAFOR
     Indication: Pancreatic carcinoma metastatic
     Dosage: 80MCG/KG/HR, DAYS 1-7, EVERY 21 DAYS
     Route: 042
     Dates: start: 20211130, end: 20220117
  3. ACETAMINOPHEN [Concomitant]
     Active Substance: ACETAMINOPHEN
     Indication: Spondylitis
     Dosage: UNK
  4. BUSPAR [Concomitant]
     Active Substance: BUSPIRONE HYDROCHLORIDE
     Indication: Anxiety
  5. CALCIUM CARBONATE\VITAMIN D [Concomitant]
     Active Substance: CALCIUM CARBONATE\VITAMIN D
     Indication: Product used for unknown indication
  6. VITAMIN D3 [Concomitant]
     Active Substance: CHOLECALCIFEROL
     Indication: Product used for unknown indication
  7. VITAMIN B12 [Concomitant]
     Active Substance: CYANOCOBALAMIN
     Indication: Product used for unknown indication
  8. FLEXERIL                           /00428402/ [Concomitant]
     Indication: Product used for unknown indication
  9. LOMOTIL                            /00034001/ [Concomitant]
     Indication: Diarrhoea
  10. FLONASE                            /00908302/ [Concomitant]
     Indication: Product used for unknown indication
  11. NEURONTIN [Concomitant]
     Active Substance: GABAPENTIN
     Indication: Product used for unknown indication
  12. SYNTHROID [Concomitant]
     Active Substance: LEVOTHYROXINE SODIUM
     Indication: Product used for unknown indication
  13. ATIVAN [Concomitant]
     Active Substance: LORAZEPAM
     Indication: Anxiety
  14. MULTI VITAMIN                      /08408501/ [Concomitant]
     Indication: Product used for unknown indication
  15. ZOFRAN                             /00955301/ [Concomitant]
     Indication: Product used for unknown indication
  16. CREON [Concomitant]
     Active Substance: PANCRELIPASE AMYLASE\PANCRELIPASE LIPASE\PANCRELIPASE PROTEASE
     Indication: Product used for unknown indication
  17. PROTONIX [Concomitant]
     Active Substance: PANTOPRAZOLE SODIUM
     Indication: Product used for unknown indication
  18. PRAVACHOL [Concomitant]
     Active Substance: PRAVASTATIN SODIUM
     Indication: Product used for unknown indication
  19. COMPAZINE                          /00013302/ [Concomitant]
     Indication: Nausea
  20. COMPAZINE                          /00013302/ [Concomitant]
     Indication: Vomiting
  21. ZOLOFT [Concomitant]
     Active Substance: SERTRALINE HYDROCHLORIDE
     Indication: Product used for unknown indication
  22. SODIUM CHLORIDE [Concomitant]
     Active Substance: SODIUM CHLORIDE
     Indication: Product used for unknown indication

REACTIONS (5)
  - Immune-mediated hepatitis [Recovered/Resolved with Sequelae]
  - Oral candidiasis [Recovering/Resolving]
  - Biliary obstruction [Recovering/Resolving]
  - Pulmonary embolism [Recovering/Resolving]
  - Sepsis [Recovering/Resolving]

NARRATIVE: CASE EVENT DATE: 20220207
